FAERS Safety Report 6098293-0 (Version None)
Quarter: 2009Q1

REPORT INFORMATION
  Report Type: 
  Country: None (occurrence: None)
  Receive Date: 20090301
  Receipt Date: 20090218
  Transmission Date: 20090719
  Serious: Yes (Hospitalization, Other)
  Sender: FDA-Public Use
  Company Number: MY-ASTRAZENECA-2009AP01309

PATIENT
  Age: 48 Year
  Sex: Male

DRUGS (5)
  1. CRESTOR [Suspect]
     Indication: HYPERTENSION
     Route: 048
  2. VENLAFAXINE HCL [Concomitant]
  3. CELECOXIB [Concomitant]
  4. CANDESARTAN [Concomitant]
  5. AMLODIPINE [Concomitant]

REACTIONS (2)
  - MYOSITIS [None]
  - RENAL FAILURE ACUTE [None]
